FAERS Safety Report 4298803-X (Version None)
Quarter: 2004Q1

REPORT INFORMATION
  Report Type: 
  Country: None (occurrence: None)
  Receive Date: 20040126
  Receipt Date: 20030918
  Transmission Date: 20041129
  Serious: No
  Sender: FDA-Public Use
  Company Number: USA030947011

PATIENT

DRUGS (2)
  1. STRATTERA [Suspect]
  2. ADDERALL 10 [Concomitant]

REACTIONS (1)
  - MOOD SWINGS [None]
